FAERS Safety Report 5151496-1 (Version None)
Quarter: 2006Q4

REPORT INFORMATION
  Report Type: 
  Country: None (occurrence: None)
  Receive Date: 20061114
  Receipt Date: 20061114
  Transmission Date: 20070319
  Serious: Yes (Other)
  Sender: FDA-Public Use
  Company Number: None

PATIENT
  Age: 53 Year
  Sex: Female
  Weight: 54.4316 kg

DRUGS (2)
  1. ACETAMINOPHEN [Suspect]
     Indication: HEADACHE
     Dates: start: 20050101, end: 20061107
  2. ACETAMINOPHEN [Suspect]
     Indication: INFLAMMATION
     Dates: start: 20050101, end: 20061107

REACTIONS (7)
  - CONTUSION [None]
  - GASTROINTESTINAL DISORDER [None]
  - NEOPLASM [None]
  - NUCLEAR MAGNETIC RESONANCE IMAGING ABNORMAL [None]
  - PHARMACEUTICAL PRODUCT COMPLAINT [None]
  - POOR QUALITY DRUG ADMINISTERED [None]
  - ULCER [None]
